FAERS Safety Report 6974383-2 (Version None)
Quarter: 2010Q3

REPORT INFORMATION
  Report Type: 
  Country: None (occurrence: None)
  Receive Date: 20100909
  Receipt Date: 20080603
  Transmission Date: 20110219
  Serious: No
  Sender: FDA-Public Use
  Company Number: US-WYE-H04368508

PATIENT
  Age: 83 Year
  Sex: Female

DRUGS (13)
  1. PROTONIX [Suspect]
     Route: 048
  2. METOPROLOL TARTRATE [Concomitant]
  3. DIGOXIN [Concomitant]
  4. DIOVAN [Concomitant]
  5. POTASSIUM CHLORIDE [Concomitant]
  6. CITRUCEL [Concomitant]
  7. SPIRONOLACTONE [Concomitant]
  8. TYLENOL [Concomitant]
  9. GABAPENTIN [Concomitant]
  10. ROPINIROLE HYDROCHLORIDE [Concomitant]
  11. LEXAPRO [Concomitant]
  12. LASIX [Concomitant]
  13. COUMADIN [Concomitant]

REACTIONS (1)
  - DRUG SCREEN FALSE POSITIVE [None]
